FAERS Safety Report 9521506 (Version 1)
Quarter: 2013Q3

REPORT INFORMATION
  Report Type: Spontaneous
  Country: US (occurrence: None)
  Receive Date: 20130905
  Receipt Date: 20130905
  Transmission Date: 20140515
  Serious: Yes (Life-Threatening)
  Sender: FDA-Public Use
  Company Number: 003-140

PATIENT
  Age: 16 Year
  Sex: Male

DRUGS (1)
  1. CROFAB [Suspect]
     Indication: SNAKE BITE
     Dosage: ~50 VIALS
     Dates: start: 20130820

REACTIONS (3)
  - Local swelling [None]
  - Haematocrit decreased [None]
  - Haemoglobin decreased [None]
